FAERS Safety Report 8973210 (Version 1)
Quarter: 2012Q4

REPORT INFORMATION
  Report Type: Report from Study
  Country: JP (occurrence: JP)
  Receive Date: 20121219
  Receipt Date: 20121219
  Transmission Date: 20130627
  Serious: Yes (Death)
  Sender: FDA-Public Use
  Company Number: JP-009507513-2011SP056484

PATIENT
  Age: 80 Year
  Sex: Male
  Weight: 65 kg

DRUGS (23)
  1. TEMOZOLOMIDE [Suspect]
     Indication: GLIOBLASTOMA MULTIFORME
     Dosage: 75 mg/sqm, qd
     Route: 048
     Dates: start: 20061219, end: 20070129
  2. TEMOZOLOMIDE [Suspect]
     Dosage: 150 mg/sqm, qd
     Route: 048
     Dates: start: 20070226, end: 20070302
  3. TEMOZOLOMIDE [Suspect]
     Dosage: 200 mg/sqm, qd
     Route: 048
     Dates: start: 20070418, end: 20070422
  4. TEMOZOLOMIDE [Suspect]
     Dosage: 150 mg/sqm, qd
     Route: 048
     Dates: start: 20070519, end: 20070523
  5. TEMOZOLOMIDE [Suspect]
     Dosage: 150 mg/sqm, qd
     Route: 048
     Dates: start: 20070615, end: 20070619
  6. TEMOZOLOMIDE [Suspect]
     Dosage: 150 mg/sqm, qd
     Route: 048
     Dates: start: 20070713, end: 20070717
  7. TEMOZOLOMIDE [Suspect]
     Dosage: 150 mg/sqm, qd
     Route: 048
     Dates: start: 20070810, end: 20070814
  8. TEMOZOLOMIDE [Suspect]
     Dosage: 150 mg/sqm, qd
     Route: 048
     Dates: start: 20070907, end: 20070911
  9. TEMOZOLOMIDE [Suspect]
     Dosage: 150 mg/sqm, qd
     Route: 048
     Dates: start: 20071005, end: 20071009
  10. TEMOZOLOMIDE [Suspect]
     Dosage: 150 mg/sqm, qd
     Route: 048
     Dates: start: 20071105, end: 20071109
  11. TEMOZOLOMIDE [Suspect]
     Dosage: 200 mg/sqm, qd
     Route: 048
     Dates: start: 20071207, end: 20071211
  12. TEMOZOLOMIDE [Suspect]
     Dosage: 200 mg/sqm, qd
     Route: 048
     Dates: start: 20080118, end: 20080122
  13. MEXITIL [Concomitant]
     Dosage: UNK
     Route: 048
     Dates: end: 20070511
  14. ADALAT CR [Concomitant]
     Dosage: UNK
     Route: 048
     Dates: start: 20061216, end: 20070511
  15. KIKYO-TO [Concomitant]
     Dosage: UNK
     Route: 048
     Dates: start: 20061216, end: 20070511
  16. EUGLUCON [Concomitant]
     Dosage: UNK
     Route: 048
     Dates: start: 20061216, end: 20070614
  17. CARDENALIN [Concomitant]
     Dosage: UNK
     Route: 048
     Dates: start: 20061216, end: 20070511
  18. HIRNAMIN (LEVOMEPROMAZINE HYDROCHLORIDE) [Concomitant]
     Dosage: UNK
     Route: 048
     Dates: start: 20061216, end: 20070511
  19. MAGNESIUM OXIDE [Concomitant]
     Dosage: UNK
     Route: 048
     Dates: start: 20061216, end: 20070511
  20. ALOSENN (SENNA) [Concomitant]
     Dosage: UNK
     Route: 048
     Dates: start: 20061216, end: 20070511
  21. BAKTAR [Concomitant]
     Indication: ANTIFUNGAL PROPHYLAXIS
     Dosage: UNK
     Route: 048
     Dates: start: 20061216, end: 20070504
  22. ZOFRAN [Concomitant]
     Indication: PROPHYLAXIS
     Dosage: UNK
     Route: 048
     Dates: start: 20061216, end: 20061218
  23. EXCEGRAN [Concomitant]
     Dosage: UNK
     Route: 048
     Dates: start: 20061216, end: 20070318

REACTIONS (3)
  - Disease progression [Fatal]
  - Eczema [Recovered/Resolved]
  - Lymphocyte count decreased [Recovered/Resolved]
